FAERS Safety Report 6738527-X (Version None)
Quarter: 2010Q2

REPORT INFORMATION
  Report Type: 
  Country: None (occurrence: None)
  Receive Date: 20100524
  Receipt Date: 20100520
  Transmission Date: 20101027
  Serious: Yes (Death)
  Sender: FDA-Public Use
  Company Number: PHHY2010US32231

PATIENT
  Sex: Female
  Weight: 53 kg

DRUGS (3)
  1. ZOMETA [Suspect]
     Indication: METASTASES TO BONE
     Dosage: 4 MG EVERY 4 WEEKS
     Route: 042
     Dates: start: 20070717, end: 20100506
  2. VITAMIN B-12 [Concomitant]
     Indication: ANAEMIA VITAMIN B12 DEFICIENCY
     Dosage: 1000 MG
     Route: 058
     Dates: start: 20080109, end: 20100506
  3. PROCRIT [Concomitant]
     Indication: ANAEMIA
     Dosage: 40 UNITS
     Route: 058
     Dates: start: 20090521, end: 20100429

REACTIONS (1)
  - DEATH [None]
